FAERS Safety Report 9402766 (Version 1)
Quarter: 2013Q3

REPORT INFORMATION
  Report Type: Spontaneous
  Country: GB (occurrence: GB)
  Receive Date: 20130716
  Receipt Date: 20130716
  Transmission Date: 20140515
  Serious: Yes (Hospitalization)
  Sender: FDA-Public Use
  Company Number: GB-TEVA-417466ISR

PATIENT
  Age: 74 Year
  Sex: 0

DRUGS (5)
  1. FLUCONAZOLE [Suspect]
     Indication: ORAL CANDIDIASIS
     Dosage: 50 MILLIGRAM DAILY;
     Route: 048
     Dates: start: 20110429, end: 20110503
  2. CEFACLOR [Suspect]
     Indication: DIVERTICULITIS
     Dosage: 750 MILLIGRAM DAILY; MODIFIED-RELEASE TABLET
     Route: 048
     Dates: start: 20110408, end: 20110414
  3. AMOXICILLIN [Suspect]
     Indication: COUGH
     Dosage: 1500 MILLIGRAM DAILY;
     Route: 048
     Dates: start: 20110328, end: 20110404
  4. AMOXICILLIN [Suspect]
     Indication: COUGH
     Dosage: 1500 MILLIGRAM DAILY;
     Route: 048
     Dates: start: 20110209, end: 20110216
  5. ERTAPENEM [Suspect]
     Indication: GRAM STAIN NEGATIVE
     Dosage: 1 GRAM DAILY; POWDER FOR SOLUTION FOR INFUSION. VIALS. PATIENT HAD BOWEL PERFORATION.
     Route: 041
     Dates: start: 20110424, end: 20110504

REACTIONS (2)
  - Clostridium difficile infection [Recovered/Resolved]
  - Diarrhoea [Unknown]
